FAERS Safety Report 4878813-1 (Version None)
Quarter: 2006Q1

REPORT INFORMATION
  Report Type: 
  Country: None (occurrence: None)
  Receive Date: 20060110
  Receipt Date: 20060110
  Transmission Date: 20060701
  Serious: Yes (Other)
  Sender: FDA-Public Use
  Company Number: None

PATIENT
  Age: 43 Year
  Sex: Male

DRUGS (5)
  1. KEPPRA [Suspect]
     Indication: SIMPLE PARTIAL SEIZURES
     Dosage: 2 TABLETS TWICE DAILY BY MOUTH
     Route: 048
     Dates: start: 20051217, end: 20051227
  2. CELEBREX [Concomitant]
  3. TOPROL [Concomitant]
  4. ZOCOR [Concomitant]
  5. PROTONIX [Concomitant]

REACTIONS (2)
  - PHARMACEUTICAL PRODUCT COMPLAINT [None]
  - SIMPLE PARTIAL SEIZURES [None]
